FAERS Safety Report 9094387 (Version 1)
Quarter: 2013Q1

REPORT INFORMATION
  Report Type: Spontaneous
  Country: US (occurrence: US)
  Receive Date: 20130201
  Receipt Date: 20130201
  Transmission Date: 20140127
  Serious: Yes (Other)
  Sender: FDA-Public Use
  Company Number: US-SANOFI-AVENTIS-2013SA007727

PATIENT
  Sex: Male

DRUGS (2)
  1. UROXATRAL [Suspect]
     Indication: PROSTATIC DISORDER
  2. UROXATRAL [Suspect]
     Indication: PROSTATIC DISORDER
     Dates: start: 201212

REACTIONS (2)
  - Loss of consciousness [Unknown]
  - Headache [Unknown]
